FAERS Safety Report 6795389-2 (Version None)
Quarter: 2010Q2

REPORT INFORMATION
  Report Type: 
  Country: None (occurrence: None)
  Receive Date: 20100520
  Receipt Date: 20090713
  Transmission Date: 20101027
  Serious: Yes (Other)
  Sender: FDA-Public Use
  Company Number: 2009239600

PATIENT
  Age: 62 Year
  Sex: Female

DRUGS (7)
  1. PROVERA [Suspect]
     Indication: HORMONE REPLACEMENT THERAPY
     Dosage: 10 MG
     Dates: start: 19911101, end: 19920801
  2. ESTRADERM [Suspect]
     Indication: HORMONE REPLACEMENT THERAPY
     Dosage: 0.05 MG
  3. PREMARIN [Suspect]
     Indication: HORMONE REPLACEMENT THERAPY
     Dosage: 0.625 MG
     Dates: start: 19921001, end: 20030801
  4. DEMADEX [Concomitant]
  5. SYNTHROID [Concomitant]
  6. DETROL LA [Concomitant]
  7. KLOR-CON [Concomitant]

REACTIONS (1)
  - BREAST CANCER FEMALE [None]
